FAERS Safety Report 9258782 (Version 1)
Quarter: 2013Q2

REPORT INFORMATION
  Report Type: Spontaneous
  Country: US (occurrence: US)
  Receive Date: 20130426
  Receipt Date: 20130426
  Transmission Date: 20140414
  Serious: Yes (Other)
  Sender: FDA-Public Use
  Company Number: US-BRISTOL-MYERS SQUIBB COMPANY-18703546

PATIENT
  Age: 69 Year
  Sex: Female
  Weight: 82.99 kg

DRUGS (5)
  1. BYETTA [Suspect]
     Indication: TYPE 2 DIABETES MELLITUS
     Dosage: 10 MICROGRM
     Route: 058
     Dates: start: 2006
  2. AVANDIA [Concomitant]
     Indication: TYPE 2 DIABETES MELLITUS
  3. LISINOPRIL [Concomitant]
     Indication: HYPERTENSION
     Route: 048
     Dates: start: 200907, end: 201304
  4. LEVOTHYROXINE [Concomitant]
     Indication: HYPOTHYROIDISM
     Route: 048
     Dates: start: 200808
  5. LOSARTAN [Concomitant]
     Indication: HYPERLIPIDAEMIA
     Route: 048
     Dates: start: 200901

REACTIONS (4)
  - Papillary thyroid cancer [Not Recovered/Not Resolved]
  - Parotid gland enlargement [Unknown]
  - Weight decreased [Recovered/Resolved]
  - Blood glucose decreased [Not Recovered/Not Resolved]
